FAERS Safety Report 14360253 (Version 4)
Quarter: 2024Q2

REPORT INFORMATION
  Report Type: Other
  Country: FR (occurrence: FR)
  Receive Date: 20180106
  Receipt Date: 20240427
  Transmission Date: 20240716
  Serious: Yes (Hospitalization, Other)
  Sender: FDA-Public Use
  Company Number: FR-NOVPHSZ-PHHY2017FR179344

PATIENT
  Age: 35 Year
  Sex: Female

DRUGS (3)
  1. MYCOPHENOLATE MOFETIL [Suspect]
     Active Substance: MYCOPHENOLATE MOFETIL
     Indication: Prophylaxis against transplant rejection
     Route: 065
  2. TACROLIMUS [Suspect]
     Active Substance: TACROLIMUS
     Indication: Prophylaxis against transplant rejection
     Route: 065
  3. INSULIN NOS [Concomitant]
     Active Substance: INSULIN NOS
     Indication: Diabetes mellitus

REACTIONS (9)
  - Acute respiratory failure [Recovering/Resolving]
  - Pneumonia influenzal [Unknown]
  - Pulmonary mucormycosis [Unknown]
  - Cytomegalovirus infection reactivation [Unknown]
  - Pathogen resistance [Unknown]
  - Cerebral fungal infection [Not Recovered/Not Resolved]
  - Off label use [Unknown]
  - Cerebral haemorrhage [Unknown]
  - Nervous system disorder [Unknown]

NARRATIVE: CASE EVENT DATE: 20130301
